FAERS Safety Report 5347491-X (Version None)
Quarter: 2007Q2

REPORT INFORMATION
  Report Type: 
  Country: None (occurrence: None)
  Receive Date: 20070606
  Receipt Date: 20070529
  Transmission Date: 20071010
  Serious: Yes (Hospitalization, Other)
  Sender: FDA-Public Use
  Company Number: PHEH2007US08000

PATIENT
  Age: 58 Year
  Sex: Female

DRUGS (8)
  1. ZELNORM [Suspect]
     Indication: IRRITABLE BOWEL SYNDROME
     Dosage: 6 MG, BID
     Route: 048
     Dates: start: 20050401, end: 20070327
  2. NEURONTIN [Concomitant]
  3. ARTHROTEC [Concomitant]
  4. ZOLOFT [Concomitant]
  5. ZANAFLEX [Concomitant]
     Indication: MUSCLE SPASMS
     Dosage: UNK, PRN
  6. ALLEGRA [Concomitant]
  7. BONIVA [Concomitant]
  8. ZEGERID [Concomitant]

REACTIONS (3)
  - CEREBROVASCULAR ACCIDENT [None]
  - CHEST PAIN [None]
  - DYSPHAGIA [None]
